FAERS Safety Report 7009595-5 (Version None)
Quarter: 2010Q3

REPORT INFORMATION
  Report Type: 
  Country: None (occurrence: None)
  Receive Date: 20100923
  Receipt Date: 20100913
  Transmission Date: 20110219
  Serious: Yes (Death, Other)
  Sender: FDA-Public Use
  Company Number: US-PFIZER INC-2008060245

PATIENT
  Sex: Male
  Weight: 172.34 kg

DRUGS (7)
  1. LYRICA [Suspect]
     Indication: DIABETIC NEUROPATHY
     Dosage: UNK
     Dates: start: 20071201
  2. LYRICA [Suspect]
     Indication: PARAESTHESIA
     Dosage: 75 MG, 2X/DAY
     Dates: start: 20080101
  3. ENALAPRIL [Concomitant]
     Dosage: UNK
  4. GLYBURIDE [Concomitant]
     Dosage: 2 IN THE MORNING AND 2 AT NIGHT
  5. POTASSIUM [Concomitant]
     Dosage: UNK
  6. METOPROLOL [Concomitant]
     Dosage: UNK
  7. LASIX [Concomitant]
     Dosage: UNK

REACTIONS (18)
  - ARTERIAL OCCLUSIVE DISEASE [None]
  - CARDIAC FAILURE [None]
  - CONJUNCTIVITIS [None]
  - FALL [None]
  - FEELING ABNORMAL [None]
  - MYOCARDIAL INFARCTION [None]
  - NERVOUS SYSTEM DISORDER [None]
  - OEDEMA [None]
  - OEDEMA PERIPHERAL [None]
  - OVERDOSE [None]
  - PARANASAL SINUS HYPERSECRETION [None]
  - RENAL FAILURE [None]
  - RESPIRATORY FAILURE [None]
  - RHABDOMYOLYSIS [None]
  - SOMNOLENCE [None]
  - SUICIDAL IDEATION [None]
  - WEIGHT INCREASED [None]
  - WHITE BLOOD CELL COUNT INCREASED [None]
